FAERS Safety Report 7853074-X (Version None)
Quarter: 2011Q4

REPORT INFORMATION
  Report Type: 
  Country: None (occurrence: None)
  Receive Date: 20111026
  Receipt Date: 20111024
  Transmission Date: 20120403
  Serious: Yes (Hospitalization)
  Sender: FDA-Public Use
  Company Number: JO-JNJFOC-20100801173

PATIENT
  Sex: Male
  Weight: 81 kg

DRUGS (3)
  1. ZOLPIDEM [Concomitant]
     Indication: INSOMNIA
     Route: 048
     Dates: start: 20100712
  2. PALIPERIDONE [Suspect]
     Route: 030
     Dates: start: 20100731
  3. PALIPERIDONE [Suspect]
     Indication: SCHIZOPHRENIA
     Route: 030
     Dates: start: 20100725

REACTIONS (1)
  - FOREIGN BODY [None]
